FAERS Safety Report 6958176-8 (Version None)
Quarter: 2010Q3

REPORT INFORMATION
  Report Type: 
  Country: None (occurrence: None)
  Receive Date: 20100831
  Receipt Date: 20100819
  Transmission Date: 20110219
  Serious: Yes (Other)
  Sender: FDA-Public Use
  Company Number: US-PFIZER INC-2010104960

PATIENT
  Sex: Male
  Weight: 77.098 kg

DRUGS (1)
  1. RELPAX [Suspect]
     Indication: MIGRAINE
     Dosage: UNK
     Route: 048

REACTIONS (2)
  - DEHYDRATION [None]
  - MIGRAINE [None]
